FAERS Safety Report 18346575 (Version 1)
Quarter: 2020Q4

REPORT INFORMATION
  Report Type: Spontaneous
  Country: GB (occurrence: GB)
  Receive Date: 20201005
  Receipt Date: 20201005
  Transmission Date: 20210114
  Serious: Yes (Other)
  Sender: FDA-Public Use
  Company Number: GB-ASCEND THERAPEUTICS US, LLC-2092423

PATIENT
  Age: 57 Year
  Sex: Female

DRUGS (4)
  1. ESTROGEL [Suspect]
     Active Substance: ESTRADIOL
  2. OESTROGEL (ESTRADIOL), UNKNOWN [Suspect]
     Active Substance: ESTRADIOL
     Route: 062
     Dates: start: 202008
  3. ESTROGEL [Suspect]
     Active Substance: ESTRADIOL
     Indication: MENOPAUSAL SYMPTOMS
     Route: 062
     Dates: start: 202008
  4. OESTRODOSE (ESTRADIOL) [Suspect]
     Active Substance: ESTRADIOL
     Route: 062
     Dates: start: 202008

REACTIONS (7)
  - Menopausal symptoms [Unknown]
  - Panic disorder [Not Recovered/Not Resolved]
  - Depression [Unknown]
  - Headache [Unknown]
  - Product substitution issue [Unknown]
  - Anxiety [Not Recovered/Not Resolved]
  - Drug ineffective [Unknown]
